FAERS Safety Report 13509774 (Version 1)
Quarter: 2017Q2

REPORT INFORMATION
  Report Type: Spontaneous
  Country: US (occurrence: US)
  Receive Date: 20170503
  Receipt Date: 20170503
  Transmission Date: 20170830
  Serious: No
  Sender: FDA-Public Use
  Company Number: US-SA-2017SA041838

PATIENT
  Age: 68 Year
  Sex: Male

DRUGS (10)
  1. ALIROCUMAB PREFILLED PEN [Concomitant]
     Active Substance: ALIROCUMAB
     Indication: HYPERLIPIDAEMIA
     Dates: start: 20160921
  2. AZELASTINE [Concomitant]
     Active Substance: AZELASTINE
     Dosage: 0.1%
  3. ULORIC [Concomitant]
     Active Substance: FEBUXOSTAT
     Dosage: STRENGTH: 80MG
  4. AZITHROMYCIN ANHYDROUS. [Concomitant]
     Active Substance: AZITHROMYCIN ANHYDROUS
     Dosage: STRENGTHG: 250MG
  5. WARFARIN [Concomitant]
     Active Substance: WARFARIN
     Dosage: 5MG
  6. PRALUENT [Suspect]
     Active Substance: ALIROCUMAB
     Indication: HYPERLIPIDAEMIA
     Route: 058
     Dates: start: 20160921
  7. BYSTOLIC [Concomitant]
     Active Substance: NEBIVOLOL HYDROCHLORIDE
     Dosage: STRENGTH: 10MG
  8. LEVOFLOXACIN. [Concomitant]
     Active Substance: LEVOFLOXACIN
     Dosage: 500MG
  9. DOXYCYCLINE HYCLATE. [Concomitant]
     Active Substance: DOXYCYCLINE HYCLATE
     Dosage: 100MG
  10. NYSTATIN. [Concomitant]
     Active Substance: NYSTATIN
     Dosage: 100000

REACTIONS (2)
  - Myalgia [Not Recovered/Not Resolved]
  - Pain in extremity [Not Recovered/Not Resolved]

NARRATIVE: CASE EVENT DATE: 201702
